FAERS Safety Report 14921696 (Version 7)
Quarter: 2018Q4

REPORT INFORMATION
  Report Type: Report from Study
  Country: None (occurrence: US)
  Receive Date: 20180522
  Receipt Date: 20181115
  Transmission Date: 20190204
  Serious: Yes (Hospitalization, Other)
  Sender: FDA-Public Use
  Company Number: US-ABBVIE-18K-163-2360492-00

PATIENT
  Age: 77 Year
  Sex: Female
  Weight: 97.16 kg

DRUGS (14)
  1. GABAPENTIN. [Concomitant]
     Active Substance: GABAPENTIN
     Indication: RESTLESS LEGS SYNDROME
  2. ROPINIROLE. [Concomitant]
     Active Substance: ROPINIROLE
     Indication: RESTLESS LEGS SYNDROME
  3. GABAPENTIN. [Concomitant]
     Active Substance: GABAPENTIN
     Indication: NEUROPATHY PERIPHERAL
  4. PREDNISONE. [Concomitant]
     Active Substance: PREDNISONE
     Indication: PRODUCT USED FOR UNKNOWN INDICATION
  5. HUMIRA [Suspect]
     Active Substance: ADALIMUMAB
     Indication: COLITIS ULCERATIVE
     Route: 058
     Dates: start: 201711, end: 201711
  6. PERCOCET [Suspect]
     Active Substance: ACETAMINOPHEN\OXYCODONE HYDROCHLORIDE
     Indication: PROCEDURAL PAIN
     Route: 065
  7. HYOSCYAMINE. [Concomitant]
     Active Substance: HYOSCYAMINE
     Indication: ABDOMINAL PAIN
  8. HUMIRA [Suspect]
     Active Substance: ADALIMUMAB
     Indication: CROHN^S DISEASE
     Route: 058
     Dates: start: 20171115, end: 20171115
  9. SEROQUEL [Suspect]
     Active Substance: QUETIAPINE FUMARATE
     Indication: DEPRESSION
     Route: 065
     Dates: start: 201806, end: 201806
  10. DIAZEPAM. [Concomitant]
     Active Substance: DIAZEPAM
     Indication: SLEEP DISORDER THERAPY
  11. DIAZEPAM. [Concomitant]
     Active Substance: DIAZEPAM
     Indication: ANXIETY
  12. OMEPRAZOLE. [Concomitant]
     Active Substance: OMEPRAZOLE
     Indication: PRODUCT USED FOR UNKNOWN INDICATION
  13. ZOLOFT [Concomitant]
     Active Substance: SERTRALINE HYDROCHLORIDE
     Indication: ANXIETY
  14. HUMIRA [Suspect]
     Active Substance: ADALIMUMAB
     Route: 058
     Dates: start: 201711, end: 20180601

REACTIONS (24)
  - Enterovesical fistula [Recovered/Resolved]
  - Anxiety [Unknown]
  - Injury [Unknown]
  - Surgery [Unknown]
  - Gastrointestinal haemorrhage [Recovered/Resolved]
  - Procedural pain [Recovered/Resolved]
  - Amnesia [Recovered/Resolved]
  - Vascular access site haemorrhage [Unknown]
  - Urinary tract infection [Recovered/Resolved]
  - Memory impairment [Unknown]
  - Fall [Recovered/Resolved]
  - Cystitis [Not Recovered/Not Resolved]
  - Crohn^s disease [Recovered/Resolved]
  - Infected fistula [Recovered/Resolved]
  - Hypotension [Unknown]
  - Fall [Unknown]
  - Post procedural complication [Unknown]
  - Catheter site extravasation [Recovered/Resolved]
  - Hypotension [Recovered/Resolved]
  - Rectal discharge [Recovered/Resolved]
  - Stress [Recovered/Resolved]
  - Anger [Recovered/Resolved]
  - Restlessness [Recovered/Resolved]
  - Dehydration [Recovered/Resolved]

NARRATIVE: CASE EVENT DATE: 2018
